FAERS Safety Report 15812044 (Version 1)
Quarter: 2019Q1

REPORT INFORMATION
  Report Type: Spontaneous
  Country: GB (occurrence: GB)
  Receive Date: 20190111
  Receipt Date: 20190111
  Transmission Date: 20190417
  Serious: Yes (Disabling)
  Sender: FDA-Public Use
  Company Number: GB-009507513-1901GBR002011

PATIENT
  Age: 7 Year
  Sex: Male

DRUGS (4)
  1. MONTELUKAST SODIUM. [Suspect]
     Active Substance: MONTELUKAST SODIUM
     Indication: ASTHMA
     Dosage: NIGHT
     Route: 048
     Dates: start: 20160923, end: 20160925
  2. CETIRIZINE HYDROCHLORIDE. [Concomitant]
     Active Substance: CETIRIZINE HYDROCHLORIDE
     Dosage: 1MG/ML ORAL SOLUTION SUGAR FREE
     Route: 048
  3. ALBUTEROL. [Concomitant]
     Active Substance: ALBUTEROL
     Dosage: UNK UNK, PRN
     Route: 050
  4. PREDNISOLONE. [Concomitant]
     Active Substance: PREDNISOLONE
     Dosage: 10MG/ML. FOR THREE DAYS
     Route: 048

REACTIONS (2)
  - Sleep terror [Recovered/Resolved with Sequelae]
  - Hallucination [Recovered/Resolved with Sequelae]

NARRATIVE: CASE EVENT DATE: 20160923
